FAERS Safety Report 7662991 (Version 1)
Quarter: 2020Q3

REPORT INFORMATION
  Report Type: Report from Study
  Country: US (occurrence: US)
  Receive Date: 20101110
  Receipt Date: 20101110
  Transmission Date: 20201104
  Serious: Yes (Hospitalization)
  Sender: FDA-Public Use
  Company Number: US-ROCHE-737836

PATIENT
  Age: 81 Year
  Sex: Female
  Weight: 96 kg

DRUGS (1)
  1. IBANDRONIC ACID. [Suspect]
     Active Substance: IBANDRONIC ACID
     Dosage: TOTAL DOSE ADMINISTERED: 1700 MG; FREQUENCY: DAILY; LAST ADMINISTERED DATE: 08 SEP 2010
     Route: 048
     Dates: start: 20081021, end: 20100908

REACTIONS (2)
  - Renal failure [Recovered/Resolved with Sequelae]
  - Hyperkalaemia [Recovered/Resolved with Sequelae]

NARRATIVE: CASE EVENT DATE: 20100908
